FAERS Safety Report 9447843 (Version 1)
Quarter: 2013Q3

REPORT INFORMATION
  Report Type: Spontaneous
  Country: US (occurrence: None)
  Receive Date: 20130807
  Receipt Date: 20130807
  Transmission Date: 20140515
  Serious: Yes (Life-Threatening)
  Sender: FDA-Public Use
  Company Number: None

PATIENT
  Age: 38 Year
  Sex: Male
  Weight: 70.76 kg

DRUGS (1)
  1. BUDESONIDE INHALATION [Suspect]
     Indication: BRONCHITIS
     Dates: start: 20130804, end: 20130806

REACTIONS (11)
  - Cold sweat [None]
  - Hypothermia [None]
  - Dyspnoea [None]
  - Pyrexia [None]
  - Nausea [None]
  - Vomiting [None]
  - Hyperventilation [None]
  - Palpitations [None]
  - Chills [None]
  - Muscle spasms [None]
  - Gait disturbance [None]
